FAERS Safety Report 5013980-0 (Version None)
Quarter: 2006Q2

REPORT INFORMATION
  Report Type: 
  Country: None (occurrence: None)
  Receive Date: 20060530
  Receipt Date: 20041005
  Transmission Date: 20061013
  Serious: Yes (Death)
  Sender: FDA-Public Use
  Company Number: CA-BOEHRINGER INGELHEIM PHARMACEUTICALS, INC.-2005-CN-00139CN

PATIENT

DRUGS (1)
  1. ATROVENT [Suspect]
     Route: 055

REACTIONS (1)
  - DEATH [None]
